FAERS Safety Report 10585449 (Version 4)
Quarter: 2016Q2

REPORT INFORMATION
  Report Type: Spontaneous
  Country: US (occurrence: US)
  Receive Date: 20141114
  Receipt Date: 20160622
  Transmission Date: 20160815
  Serious: Yes (Death, Hospitalization, Other)
  Sender: FDA-Public Use
  Company Number: US-GLAXOSMITHKLINE-US2014GSK021183

PATIENT
  Age: 84 Year
  Sex: Male

DRUGS (3)
  1. LEVETIRACETAM. [Concomitant]
     Active Substance: LEVETIRACETAM
  2. COREG CR [Suspect]
     Active Substance: CARVEDILOL PHOSPHATE
     Indication: BLOOD PRESSURE ABNORMAL
     Dosage: 80 MG, QD
     Route: 048
     Dates: start: 201309
  3. COREG CR [Suspect]
     Active Substance: CARVEDILOL PHOSPHATE
     Indication: CARDIAC DISORDER

REACTIONS (10)
  - Fall [Unknown]
  - Spinal fracture [Unknown]
  - Stent placement [Unknown]
  - Feeding disorder [Unknown]
  - Depression [Not Recovered/Not Resolved]
  - Dizziness [Unknown]
  - Death [Fatal]
  - Visual acuity reduced [Not Recovered/Not Resolved]
  - Fluid intake reduced [Unknown]
  - Dysuria [Unknown]

NARRATIVE: CASE EVENT DATE: 2016
